FAERS Safety Report 4281323-6 (Version None)
Quarter: 2004Q1

REPORT INFORMATION
  Report Type: 
  Country: None (occurrence: None)
  Receive Date: 20040129
  Receipt Date: 20030930
  Transmission Date: 20041129
  Serious: Yes (Other)
  Sender: FDA-Public Use
  Company Number: FR-ROCHE-348137

PATIENT
  Age: 46 Year
  Sex: Female
  Weight: 63 kg

DRUGS (3)
  1. CAPECITABINE [Suspect]
     Dosage: DIVIDED DAILY DOSING FOR 2 WEEKS FOLLOWED BY ONE WEEK REST
     Route: 048
     Dates: start: 20030729, end: 20030930
  2. ERLOTINIB [Suspect]
     Route: 048
     Dates: start: 20030730, end: 20030930
  3. OXALIPLATINE [Suspect]
     Dosage: 130 MG/M2
     Route: 042
     Dates: start: 20030729, end: 20030930

REACTIONS (1)
  - HENOCH-SCHONLEIN PURPURA [None]
